FAERS Safety Report 21784646 (Version 1)
Quarter: 2022Q4

REPORT INFORMATION
  Report Type: Other
  Country: CA (occurrence: CA)
  Receive Date: 20221227
  Receipt Date: 20221227
  Transmission Date: 20230113
  Serious: Yes (Death)
  Sender: FDA-Public Use
  Company Number: CA-DECIPHERA PHARMACEUTICALS LLC-2022CA001080

PATIENT
  Sex: Female
  Weight: 58 kg

DRUGS (1)
  1. QINLOCK [Suspect]
     Active Substance: RIPRETINIB
     Indication: Gastrointestinal stromal tumour
     Dosage: 150 MILLIGRAM, QD
     Route: 048
     Dates: start: 20220128, end: 20220906

REACTIONS (1)
  - Death [Fatal]

NARRATIVE: CASE EVENT DATE: 20221219
